FAERS Safety Report 4718399-5 (Version None)
Quarter: 2005Q3

REPORT INFORMATION
  Report Type: 
  Country: None (occurrence: None)
  Receive Date: 20050720
  Receipt Date: 20050708
  Transmission Date: 20060218
  Serious: Yes (Death)
  Sender: FDA-Public Use
  Company Number: US-MERCK-0507USA01534

PATIENT
  Age: 58 Year
  Sex: Female

DRUGS (11)
  1. PEPCID [Suspect]
     Route: 048
  2. OCTREOTIDE [Concomitant]
     Route: 065
  3. OLANZAPINE [Suspect]
     Indication: NAUSEA
     Route: 065
  4. OLANZAPINE [Suspect]
     Route: 065
  5. MIRTAZAPINE [Suspect]
     Route: 065
  6. MORPHINE [Suspect]
     Indication: PAIN
     Route: 042
  7. MORPHINE [Suspect]
     Route: 042
  8. ESOMEPRAZOLE [Concomitant]
     Route: 065
  9. HALOPERIDOL [Concomitant]
     Indication: NAUSEA
     Route: 065
  10. [THERAPY UNSPECIFIED] [Concomitant]
     Indication: SPINAL ANAESTHESIA
     Route: 065
  11. FENTANYL [Concomitant]
     Route: 065

REACTIONS (5)
  - DEATH [None]
  - DELIRIUM [None]
  - DRUG TOXICITY [None]
  - HALLUCINATION, VISUAL [None]
  - MYOCLONUS [None]
